FAERS Safety Report 12900095 (Version 8)
Quarter: 2021Q4

REPORT INFORMATION
  Report Type: Report from Study
  Country: CO (occurrence: CO)
  Receive Date: 20161101
  Receipt Date: 20211029
  Transmission Date: 20220303
  Serious: Yes (Hospitalization, Other)
  Sender: FDA-Public Use
  Company Number: PHHY2016CO149950

PATIENT
  Age: 23 Year
  Sex: Male
  Weight: 62 kg

DRUGS (6)
  1. EXJADE [Suspect]
     Active Substance: DEFERASIROX
     Indication: Sickle cell anaemia
     Dosage: 500 MG, TID
     Route: 048
     Dates: start: 20070929, end: 201612
  2. EXJADE [Suspect]
     Active Substance: DEFERASIROX
     Indication: Thalassaemia
  3. JADENU [Suspect]
     Active Substance: DEFERASIROX
     Indication: Sickle cell disease
     Dosage: UNK
     Route: 048
  4. HYDROXYUREA [Concomitant]
     Active Substance: HYDROXYUREA
     Indication: Thalassaemia
     Dosage: 500 MG, Q8H
     Route: 048
  5. FOLIC ACID [Concomitant]
     Active Substance: FOLIC ACID
     Indication: Product used for unknown indication
     Dosage: 5 MG, QD
     Route: 048
  6. HYDROMORPHONE [Concomitant]
     Active Substance: HYDROMORPHONE
     Indication: Pain
     Dosage: 2.5 MG, PRN
     Route: 048

REACTIONS (30)
  - Cerebrovascular accident [Unknown]
  - General physical health deterioration [Unknown]
  - Jaundice [Unknown]
  - Diarrhoea [Unknown]
  - Haemoglobin decreased [Unknown]
  - Pain in extremity [Unknown]
  - Disease recurrence [Unknown]
  - Sickle cell anaemia with crisis [Unknown]
  - Back pain [Unknown]
  - Seizure [Unknown]
  - Haemolysis [Unknown]
  - Vomiting [Unknown]
  - Haemoglobinopathy [Unknown]
  - Serum ferritin increased [Unknown]
  - Pain [Unknown]
  - Chest pain [Unknown]
  - Yellow skin [Unknown]
  - Headache [Unknown]
  - Scoliosis [Unknown]
  - Ascites [Unknown]
  - Hepatomegaly [Unknown]
  - Renal disorder [Unknown]
  - Cholelithiasis [Unknown]
  - Inguinal hernia [Unknown]
  - Liver disorder [Unknown]
  - Abdominal pain [Unknown]
  - Blood bilirubin increased [Unknown]
  - Pyrexia [Unknown]
  - Influenza [Unknown]
  - Cough [Unknown]

NARRATIVE: CASE EVENT DATE: 20161018
